FAERS Safety Report 24462840 (Version 1)
Quarter: 2024Q4

REPORT INFORMATION
  Report Type: Spontaneous
  Country: US (occurrence: US)
  Receive Date: 20241018
  Receipt Date: 20241018
  Transmission Date: 20250114
  Serious: Yes (Other)
  Sender: PADAGIS
  Company Number: US-PADAGIS-2024PAD01622

PATIENT

DRUGS (1)
  1. IMIQUIMOD [Suspect]
     Active Substance: IMIQUIMOD
     Indication: Extramammary Paget^s disease
     Dosage: UNK
     Route: 061

REACTIONS (4)
  - Disease progression [Unknown]
  - Therapy partial responder [Unknown]
  - Therapy non-responder [Unknown]
  - Product use in unapproved indication [Unknown]
